FAERS Safety Report 10380694 (Version 1)
Quarter: 2014Q1

REPORT INFORMATION
  Report Type: Spontaneous
  Country: US (occurrence: None)
  Receive Date: 20140306
  Receipt Date: 20140306
  Transmission Date: 20141002
  Serious: Yes (Other)
  Sender: FDA-Public Use
  Company Number: 163-21880-13102883

PATIENT
  Age: 88 Year
  Sex: Female

DRUGS (9)
  1. REVLIMID (LENALIDOMIDE) (5 MILLIGRAM, CAPSULES) [Suspect]
     Indication: PLASMA CELL MYELOMA
     Route: 048
     Dates: start: 20130103
  2. AMLODIPINE BESYLATE (AMLODIPINE BESILATE) [Concomitant]
  3. DEXAMETHASONE [Concomitant]
  4. SYNTHROID (LEVOTHYROXINE SODIUM) [Concomitant]
  5. POTASSIUM CL (POTASSIUM CHLORIDE) [Concomitant]
  6. OMEPRAZOLE [Concomitant]
  7. ASPIRIN (ACETYLSALICYLIC ACID) [Concomitant]
  8. COMPLETE MULTIVITAMIN (MULTIVITAMINS) [Concomitant]
  9. IMODIUM A-D (LOPERAMIDE HYDROCHLORIDE) [Concomitant]

REACTIONS (4)
  - Diarrhoea [None]
  - Fatigue [None]
  - Urinary tract infection [None]
  - Flatulence [None]
